FAERS Safety Report 18893584 (Version 2)
Quarter: 2021Q1

REPORT INFORMATION
  Report Type: Spontaneous
  Country: DE (occurrence: DE)
  Receive Date: 20210215
  Receipt Date: 20210305
  Transmission Date: 20210420
  Serious: Yes (Other)
  Sender: FDA-Public Use
  Company Number: DE-ALLERGAN-2106356US

PATIENT
  Sex: Female
  Weight: 59 kg

DRUGS (1)
  1. VISTABEL [Suspect]
     Active Substance: BOTULINUM TOXIN TYPE A
     Indication: SKIN WRINKLING
     Dosage: 25 UNITS, SINGLE
     Dates: start: 20210119, end: 20210119

REACTIONS (28)
  - Dyspnoea [Recovered/Resolved]
  - Arrhythmia [Recovered/Resolved]
  - Dysarthria [Recovered/Resolved]
  - Malaise [Recovered/Resolved]
  - Injection site swelling [Recovered/Resolved]
  - Anaphylactic reaction [Recovered/Resolved]
  - Panic reaction [Recovered/Resolved]
  - Injection site warmth [Recovered/Resolved]
  - Erythema [Recovered/Resolved]
  - Influenza like illness [Recovered/Resolved]
  - Fatigue [Recovered/Resolved]
  - Cardiovascular disorder [Recovered/Resolved]
  - Diarrhoea [Recovered/Resolved]
  - Angina pectoris [Recovered/Resolved]
  - Pain [Recovered/Resolved]
  - Paraesthesia [Recovered/Resolved]
  - Chills [Recovered/Resolved]
  - Feeling cold [Recovered/Resolved]
  - Tremor [Recovered/Resolved]
  - Injection site pain [Recovered/Resolved]
  - Dizziness [Recovered/Resolved]
  - Wheezing [Recovered/Resolved]
  - Headache [Recovered/Resolved]
  - Palpitations [Recovered/Resolved]
  - Dysphagia [Recovered/Resolved]
  - Pain in extremity [Recovered/Resolved]
  - Extrasystoles [Recovered/Resolved]
  - Off label use [Unknown]

NARRATIVE: CASE EVENT DATE: 20210119
